FAERS Safety Report 25527540 (Version 2)
Quarter: 2025Q3

REPORT INFORMATION
  Report Type: Spontaneous
  Country: EU (occurrence: EU)
  Receive Date: 20250708
  Receipt Date: 20250930
  Transmission Date: 20251021
  Serious: Yes (Life-Threatening, Other)
  Sender: HIKMA
  Company Number: None

PATIENT
  Age: 57 Year
  Sex: Female
  Weight: 87 kg

DRUGS (4)
  1. CARBOPLATIN [Suspect]
     Active Substance: CARBOPLATIN
     Indication: Endometrial adenocarcinoma
     Dosage: 380 MILLIGRAM, 3W
     Route: 042
     Dates: start: 20250502, end: 20250523
  2. BISOPROLOL FUMARATE [Concomitant]
     Active Substance: BISOPROLOL FUMARATE
     Indication: Extrasystoles
     Dosage: 25 MILLIGRAM, QD
     Route: 048
  3. PACLITAXEL [Concomitant]
     Active Substance: PACLITAXEL
     Indication: Endometrial adenocarcinoma
     Route: 042
     Dates: start: 20250502
  4. PREGABALIN [Concomitant]
     Active Substance: PREGABALIN
     Indication: Paraesthesia
     Route: 048

REACTIONS (3)
  - Hypotension [Recovered/Resolved]
  - Pruritus [Recovered/Resolved]
  - Dyspnoea [Recovered/Resolved]

NARRATIVE: CASE EVENT DATE: 20250523
